FAERS Safety Report 21366664 (Version 4)
Quarter: 2023Q2

REPORT INFORMATION
  Report Type: Spontaneous
  Country: CA (occurrence: CA)
  Receive Date: 20220923
  Receipt Date: 20230530
  Transmission Date: 20230722
  Serious: Yes (Hospitalization)
  Sender: FDA-Public Use
  Company Number: CA-LEO Pharma-345532

PATIENT
  Age: 9 Year
  Sex: Male
  Weight: 35 kg

DRUGS (5)
  1. PREDNISONE [Concomitant]
     Active Substance: PREDNISONE
     Indication: Rash
     Dosage: DOSAGE : 40 MG DAILY ORAL
     Route: 048
     Dates: start: 20220808, end: 20220814
  2. PREDNISONE [Concomitant]
     Active Substance: PREDNISONE
     Indication: Rash
     Dosage: DOSAGE : 10 MG DAILY ORAL
     Route: 048
     Dates: start: 20220822, end: 20220828
  3. PREDNISONE [Concomitant]
     Active Substance: PREDNISONE
     Indication: Rash
     Dosage: 20 MG DAILY ORAL
     Route: 048
     Dates: start: 20220815, end: 20220821
  4. PROTOPIC [Suspect]
     Active Substance: TACROLIMUS
     Indication: Rash
     Dosage: NON-BIOLOGIC PRODUCT, 0.1 % BID
     Route: 003
     Dates: start: 20220902, end: 20220910
  5. TOPILENE [Concomitant]
     Indication: Rash
     Dosage: DOSAGE : TOPICAL 0.05 %
     Route: 003
     Dates: start: 20220731, end: 20220828

REACTIONS (10)
  - Burning sensation [Recovered/Resolved]
  - Pyrexia [Recovered/Resolved]
  - Product use issue [Unknown]
  - Product use in unapproved indication [Unknown]
  - Lymphadenopathy [Recovered/Resolved]
  - Pain [Recovered/Resolved]
  - Groin pain [Recovered/Resolved]
  - Arthralgia [Recovered/Resolved]
  - Arthralgia [Recovered/Resolved]
  - Gait disturbance [Recovered/Resolved]
